FAERS Safety Report 17970267 (Version 2)
Quarter: 2020Q3

REPORT INFORMATION
  Report Type: Spontaneous
  Country: US (occurrence: US)
  Receive Date: 20200702
  Receipt Date: 20200707
  Transmission Date: 20201103
  Serious: Yes (Hospitalization, Other)
  Sender: FDA-Public Use
  Company Number: US-ROCHE-2634366

PATIENT
  Sex: Female

DRUGS (1)
  1. ACTEMRA [Suspect]
     Active Substance: TOCILIZUMAB
     Indication: PRODUCT USED FOR UNKNOWN INDICATION
     Dosage: FREQUENCY : OTHER. DATE OF USE : APRIL 2020 ? PRESENT.
     Route: 058
     Dates: start: 202004

REACTIONS (4)
  - Eye irritation [Unknown]
  - Vaginal haemorrhage [Unknown]
  - Blood cholesterol increased [Unknown]
  - Thrombosis [Unknown]
